FAERS Safety Report 4797464-0 (Version None)
Quarter: 2005Q4

REPORT INFORMATION
  Report Type: 
  Country: None (occurrence: None)
  Receive Date: 20051006
  Receipt Date: 20051006
  Transmission Date: 20060501
  Serious: Yes (Life-Threatening, Hospitalization)
  Sender: FDA-Public Use
  Company Number: None

PATIENT
  Age: 27 Year
  Sex: Female
  Weight: 70 kg

DRUGS (2)
  1. PAROXETINE HCL [Suspect]
     Indication: SUICIDE ATTEMPT
     Dosage: A MIXTURE OF 50 PILLS
     Dates: start: 20041118
  2. CELECOXIB [Suspect]
     Dosage: A MIXTURE OF 50 PILLS

REACTIONS (8)
  - DYSURIA [None]
  - HEADACHE [None]
  - INTENTIONAL DRUG MISUSE [None]
  - NAUSEA [None]
  - OVERDOSE [None]
  - SUICIDAL IDEATION [None]
  - SUICIDE ATTEMPT [None]
  - VOMITING [None]
